FAERS Safety Report 6541916-X (Version None)
Quarter: 2010Q1

REPORT INFORMATION
  Report Type: 
  Country: None (occurrence: None)
  Receive Date: 20100119
  Receipt Date: 20100114
  Transmission Date: 20100710
  Serious: Yes (Other)
  Sender: FDA-Public Use
  Company Number: BR-ABBOTT-09P-020-0615424-00

PATIENT
  Sex: Male
  Weight: 87 kg

DRUGS (5)
  1. HUMIRA [Suspect]
     Indication: ANKYLOSING SPONDYLITIS
     Route: 058
  2. MIRTAZAPINE [Concomitant]
     Indication: SLEEP DISORDER THERAPY
     Route: 048
  3. ESCITALOPRAM OXALATE [Concomitant]
     Indication: PAIN
     Route: 048
  4. UNNKNOWN CORTICOID [Concomitant]
     Indication: IMMUNE SYSTEM DISORDER
     Route: 048
  5. UNNKNOWN CORTICOID [Concomitant]

REACTIONS (15)
  - ARTHRALGIA [None]
  - ATELECTASIS [None]
  - BLOOD PRESSURE ABNORMAL [None]
  - BONE PAIN [None]
  - DIZZINESS [None]
  - DYSPNOEA [None]
  - FALL [None]
  - FATIGUE [None]
  - ILL-DEFINED DISORDER [None]
  - INSOMNIA [None]
  - LUNG NEOPLASM [None]
  - MUSCULOSKELETAL PAIN [None]
  - PAIN [None]
  - SWELLING [None]
  - VISUAL IMPAIRMENT [None]
